FAERS Safety Report 24137994 (Version 2)
Quarter: 2024Q3

REPORT INFORMATION
  Report Type: Spontaneous
  Country: US (occurrence: US)
  Receive Date: 20240725
  Receipt Date: 20240815
  Transmission Date: 20241017
  Serious: No
  Sender: SANOFI AVENTIS
  Company Number: US-SANOFI-02141903

PATIENT
  Age: 81 Year
  Sex: Female
  Weight: 79.35 kg

DRUGS (1)
  1. DUPIXENT [Suspect]
     Active Substance: DUPILUMAB
     Indication: Dermatitis atopic
     Dosage: 300 MG, QOW
     Route: 058
     Dates: start: 20240607

REACTIONS (2)
  - Injection site urticaria [Unknown]
  - Injection site reaction [Unknown]

NARRATIVE: CASE EVENT DATE: 20240101
